FAERS Safety Report 22339884 (Version 1)
Quarter: 2023Q2

REPORT INFORMATION
  Report Type: Spontaneous
  Country: IT (occurrence: IT)
  Receive Date: 20230518
  Receipt Date: 20230518
  Transmission Date: 20230722
  Serious: Yes (Other)
  Sender: FDA-Public Use
  Company Number: IT-JNJFOC-20230442249

PATIENT
  Age: 48 Year
  Sex: Male

DRUGS (3)
  1. XANAX [Suspect]
     Active Substance: ALPRAZOLAM
     Indication: Product used for unknown indication
     Dosage: 80 DOSAGE FORM (80 TABLET)
     Route: 065
  2. HALDOL [Suspect]
     Active Substance: HALOPERIDOL
     Indication: Product used for unknown indication
     Dosage: 60 MILLIGRAM (30ML BOTTLE SOLUTION)
     Route: 048
  3. DELORAZEPAM [Suspect]
     Active Substance: DELORAZEPAM
     Indication: Product used for unknown indication
     Dosage: 50 DOSAGE FORM (50 CAPSULE)
     Route: 065

REACTIONS (4)
  - Intentional self-injury [Unknown]
  - Intentional product misuse [Unknown]
  - Overdose [Unknown]
  - Lethargy [Unknown]
